FAERS Safety Report 8086254-1 (Version None)
Quarter: 2012Q1

REPORT INFORMATION
  Report Type: 
  Country: None (occurrence: None)
  Receive Date: 20120128
  Receipt Date: 20110415
  Transmission Date: 20120608
  Serious: No
  Sender: FDA-Public Use
  Company Number: US-ABBOTT-11P-163-0719755-00

PATIENT
  Sex: Male

DRUGS (3)
  1. ENBREL [Concomitant]
  2. STELARA [Concomitant]
  3. HUMIRA [Suspect]
     Indication: PSORIATIC ARTHROPATHY
     Dates: start: 20110322

REACTIONS (1)
  - ARTHRITIS [None]
